FAERS Safety Report 6378744-4 (Version None)
Quarter: 2009Q3

REPORT INFORMATION
  Report Type: 
  Country: None (occurrence: None)
  Receive Date: 20090928
  Receipt Date: 20090918
  Transmission Date: 20100115
  Serious: Yes (Hospitalization)
  Sender: FDA-Public Use
  Company Number: US-ABBOTT-09P-163-0598075-00

PATIENT
  Sex: Female
  Weight: 63.56 kg

DRUGS (15)
  1. HUMIRA [Suspect]
     Indication: RHEUMATOID ARTHRITIS
     Dates: start: 20070101, end: 20080401
  2. HUMIRA [Suspect]
     Dates: start: 20090801
  3. SPIRIVA [Concomitant]
     Indication: RESPIRATORY DISORDER
  4. ADVAIR DISKUS 100/50 [Concomitant]
     Indication: RESPIRATORY DISORDER
  5. PLAQUENIL [Concomitant]
     Indication: RHEUMATOID ARTHRITIS
  6. ZOCOR [Concomitant]
     Indication: BLOOD CHOLESTEROL INCREASED
  7. NORVASC [Concomitant]
     Indication: HYPERTENSION
  8. FOLIC ACID [Concomitant]
     Indication: RHEUMATOID ARTHRITIS
  9. HECTORAL [Concomitant]
     Indication: RENAL DISORDER
  10. ZEMPLAR [Concomitant]
     Indication: RENAL DISORDER
  11. VITAMIN D [Concomitant]
     Indication: VITAMIN SUPPLEMENTATION
  12. VITAMIN B-12 [Concomitant]
     Indication: PERNICIOUS ANAEMIA
  13. MIRALAX [Concomitant]
     Indication: CONSTIPATION
  14. FORTACAL [Concomitant]
     Indication: OSTEOPOROSIS
  15. NORCO [Concomitant]
     Indication: PAIN

REACTIONS (8)
  - BACK PAIN [None]
  - CONDITION AGGRAVATED [None]
  - DRUG INEFFECTIVE [None]
  - DYSSTASIA [None]
  - FIBROMYALGIA [None]
  - INJECTION SITE ERYTHEMA [None]
  - MYALGIA [None]
  - URINARY TRACT INFECTION [None]
